FAERS Safety Report 6267280-1 (Version None)
Quarter: 2009Q3

REPORT INFORMATION
  Report Type: 
  Country: None (occurrence: None)
  Receive Date: 20090714
  Receipt Date: 20090710
  Transmission Date: 20100115
  Serious: Yes (Hospitalization)
  Sender: FDA-Public Use
  Company Number: US-B.I. PHARMACEUTICALS,INC./RIDGEFIELD-2009-BP-05268BP

PATIENT
  Sex: Male

DRUGS (3)
  1. COMBIVENT [Suspect]
     Indication: CHRONIC OBSTRUCTIVE PULMONARY DISEASE
     Dosage: 8 PUF
     Route: 055
     Dates: start: 20080401, end: 20090424
  2. COMBIVENT [Suspect]
     Dosage: 12 PUF
     Route: 055
     Dates: start: 20090426
  3. OXYGEN [Concomitant]
     Indication: EMPHYSEMA

REACTIONS (1)
  - DYSPNOEA [None]
